FAERS Safety Report 6917598-1 (Version None)
Quarter: 2010Q3

REPORT INFORMATION
  Report Type: 
  Country: None (occurrence: None)
  Receive Date: 20100810
  Receipt Date: 20070712
  Transmission Date: 20110219
  Serious: Yes (Death)
  Sender: FDA-Public Use
  Company Number: US-PFIZER INC-2007058514

PATIENT
  Sex: Female
  Weight: 45.4 kg

DRUGS (2)
  1. CELEBREX [Suspect]
     Indication: ARTHRITIS
     Dates: start: 19990720
  2. ACETAMINOPHEN [Concomitant]

REACTIONS (1)
  - MYOCARDIAL INFARCTION [None]
